FAERS Safety Report 25244703 (Version 3)
Quarter: 2025Q2

REPORT INFORMATION
  Report Type: Spontaneous
  Country: US (occurrence: US)
  Receive Date: 20250428
  Receipt Date: 20250530
  Transmission Date: 20250716
  Serious: Yes (Other)
  Sender: CHATTEM
  Company Number: US-OPELLA-2025OHG011927

PATIENT
  Sex: Male

DRUGS (1)
  1. GOLD BOND ORIGINAL STRENGTH [Suspect]
     Active Substance: MENTHOL
     Indication: Product used for unknown indication
     Route: 065

REACTIONS (6)
  - Mesothelioma [Unknown]
  - Interstitial lung disease [Unknown]
  - Lung adenocarcinoma [Unknown]
  - Lung neoplasm malignant [Unknown]
  - Asbestosis [Unknown]
  - Exposure to chemical pollution [Unknown]
